FAERS Safety Report 24384277 (Version 1)
Quarter: 2024Q3

REPORT INFORMATION
  Report Type: Spontaneous
  Country: US (occurrence: None)
  Receive Date: 20240930
  Receipt Date: 20240930
  Transmission Date: 20241016
  Serious: Yes (unspecified)
  Sender: Public
  Company Number: None

PATIENT
  Sex: Female

DRUGS (1)
  1. SOTYKTU [Suspect]
     Active Substance: DEUCRAVACITINIB
     Indication: Psoriasis
     Dosage: OTHER QUANTITY : 1 TABLET(S);?FREQUENCY : DAILY;?
     Route: 048
     Dates: start: 20230401, end: 20240801

REACTIONS (4)
  - Renal impairment [None]
  - Glomerular filtration rate decreased [None]
  - Blood creatinine increased [None]
  - Therapy cessation [None]

NARRATIVE: CASE EVENT DATE: 20231101
